FAERS Safety Report 4714570-7 (Version None)
Quarter: 2005Q3

REPORT INFORMATION
  Report Type: 
  Country: None (occurrence: None)
  Receive Date: 20050714
  Receipt Date: 20050706
  Transmission Date: 20060218
  Serious: Yes (Hospitalization)
  Sender: FDA-Public Use
  Company Number: FR-MERCK-0507FRA00018

PATIENT
  Age: 76 Year
  Sex: Female
  Weight: 64 kg

DRUGS (3)
  1. VIOXX [Suspect]
     Indication: OSTEOARTHRITIS
     Route: 048
     Dates: start: 20030220, end: 20030601
  2. TRIMETAZIDINE HYDROCHLORIDE [Concomitant]
     Indication: VERTIGO
     Route: 048
  3. GINKGO BILOBA EXTRACT [Concomitant]
     Indication: VERTIGO
     Route: 048

REACTIONS (4)
  - ARTERIOSPASM CORONARY [None]
  - CORONARY ARTERY ATHEROSCLEROSIS [None]
  - HYPERTENSION [None]
  - MYOCARDIAL ISCHAEMIA [None]
